FAERS Safety Report 16919436 (Version 1)
Quarter: 2019Q4

REPORT INFORMATION
  Report Type: Spontaneous
  Country: US (occurrence: US)
  Receive Date: 20191014
  Receipt Date: 20191014
  Transmission Date: 20200122
  Serious: Yes (Disabling)
  Sender: FDA-Public Use
  Company Number: None

PATIENT
  Age: 25 Year
  Sex: Female
  Weight: 45 kg

DRUGS (10)
  1. MUCINEX [Concomitant]
     Active Substance: GUAIFENESIN
  2. DULERA [Concomitant]
     Active Substance: FORMOTEROL FUMARATE DIHYDRATE\MOMETASONE FUROATE
  3. RHINOCORT [Concomitant]
     Active Substance: BUDESONIDE
  4. MONTELUKAST SODIUM (GENERIC SINGULAIR) [Concomitant]
  5. QVAR REDIHALER [Suspect]
     Active Substance: BECLOMETHASONE DIPROPIONATE
     Indication: ASTHMA
     Route: 055
  6. GENERIC PRILOSEC [Concomitant]
     Active Substance: OMEPRAZOLE MAGNESIUM
  7. ZYRTEC [Concomitant]
     Active Substance: CETIRIZINE HYDROCHLORIDE
  8. ALLEGRA [Concomitant]
     Active Substance: FEXOFENADINE HYDROCHLORIDE
  9. ZOPHENEX INHALER (ALBULTEROL) [Concomitant]
  10. PAROXOTINE (GENERIC PAXIL) [Concomitant]

REACTIONS (6)
  - Drug ineffective [None]
  - Impaired quality of life [None]
  - Dyspnoea [None]
  - Product substitution issue [None]
  - Middle insomnia [None]
  - Asthma [None]

NARRATIVE: CASE EVENT DATE: 20180315
